FAERS Safety Report 7409834-2 (Version None)
Quarter: 2011Q2

REPORT INFORMATION
  Report Type: 
  Country: None (occurrence: None)
  Receive Date: 20110412
  Receipt Date: 20110331
  Transmission Date: 20111010
  Serious: Yes (Other)
  Sender: FDA-Public Use
  Company Number: US-ELI_LILLY_AND_COMPANY-US201104000758

PATIENT
  Sex: Female

DRUGS (2)
  1. ASPIRIN [Concomitant]
     Dosage: UNK, UNKNOWN
     Route: 065
  2. EFFIENT [Suspect]
     Indication: ACUTE MYOCARDIAL INFARCTION
     Dosage: 10 MG, UNKNOWN
     Route: 065

REACTIONS (3)
  - OFF LABEL USE [None]
  - CAROTID ARTERY STENOSIS [None]
  - TRANSIENT ISCHAEMIC ATTACK [None]
